FAERS Safety Report 5082386-0 (Version None)
Quarter: 2006Q3

REPORT INFORMATION
  Report Type: 
  Country: None (occurrence: None)
  Receive Date: 20060817
  Receipt Date: 20060501
  Transmission Date: 20061208
  Serious: Yes (Other)
  Sender: FDA-Public Use
  Company Number: US-BAYER-200612865BWH

PATIENT
  Age: 70 Year
  Sex: Male
  Weight: 75 kg

DRUGS (5)
  1. NEXAVAR [Suspect]
     Indication: METASTATIC RENAL CELL CARCINOMA
     Dosage: TOTAL DAILY DOSE: 400 MG  UNIT DOSE: 200 MG
     Route: 048
     Dates: start: 20051212, end: 20060504
  2. NEXAVAR [Suspect]
     Dosage: TOTAL DAILY DOSE: 400 MG  UNIT DOSE: 200 MG
     Route: 048
     Dates: start: 20051101, end: 20051202
  3. NEXAVAR [Suspect]
     Dosage: TOTAL DAILY DOSE: 800 MG  UNIT DOSE: 200 MG
     Route: 048
     Dates: start: 20051108, end: 20051111
  4. ATENOLOL [Concomitant]
     Indication: HYPERTENSION
     Dosage: TOTAL DAILY DOSE: 50 MG
  5. HYDROCHLOROTHIAZIDE [Concomitant]
     Dosage: TOTAL DAILY DOSE: 12.5 MG

REACTIONS (9)
  - ALOPECIA [None]
  - ANOREXIA [None]
  - BLISTER [None]
  - HYPERTENSION [None]
  - HYPOAESTHESIA [None]
  - NEOPLASM PROGRESSION [None]
  - PAIN IN EXTREMITY [None]
  - PALMAR-PLANTAR ERYTHRODYSAESTHESIA SYNDROME [None]
  - VASCULAR NEOPLASM [None]
